FAERS Safety Report 7176299-8 (Version None)
Quarter: 2010Q4

REPORT INFORMATION
  Report Type: 
  Country: None (occurrence: None)
  Receive Date: 20101220
  Receipt Date: 20101206
  Transmission Date: 20110411
  Serious: No
  Sender: FDA-Public Use
  Company Number: US-PFIZER INC-2010165352

PATIENT
  Sex: Male
  Weight: 91.6 kg

DRUGS (2)
  1. CELEBREX [Suspect]
     Indication: ARTHRITIS
     Dosage: UNK, 2X/DAY
     Route: 048
     Dates: start: 20101001
  2. CELEBREX [Suspect]
     Indication: BACK PAIN

REACTIONS (2)
  - CONSTIPATION [None]
  - RASH [None]
